FAERS Safety Report 4558825-8 (Version None)
Quarter: 2005Q1

REPORT INFORMATION
  Report Type: 
  Country: None (occurrence: None)
  Receive Date: 20050121
  Receipt Date: 20050113
  Transmission Date: 20050727
  Serious: Yes (Hospitalization)
  Sender: FDA-Public Use
  Company Number: ES-GLAXOSMITHKLINE-B0364902A

PATIENT
  Age: 15 Year
  Sex: Male

DRUGS (2)
  1. AUGMENTIN [Suspect]
     Indication: PROPHYLAXIS
     Route: 042
     Dates: start: 20041221, end: 20041221
  2. ANESTHESIA [Concomitant]
     Route: 065

REACTIONS (5)
  - BLOOD CREATININE INCREASED [None]
  - FEELING ABNORMAL [None]
  - MALAISE [None]
  - PYREXIA [None]
  - RENAL FAILURE ACUTE [None]
